FAERS Safety Report 20770049 (Version 1)
Quarter: 2022Q2

REPORT INFORMATION
  Report Type: Spontaneous
  Country: PL (occurrence: PL)
  Receive Date: 20220429
  Receipt Date: 20220429
  Transmission Date: 20220720
  Serious: Yes (Life-Threatening)
  Sender: FDA-Public Use
  Company Number: None

PATIENT
  Age: 37 Year
  Sex: Female
  Weight: 85 kg

DRUGS (2)
  1. LAMOTRIGINE [Suspect]
     Active Substance: LAMOTRIGINE
     Indication: Mental disorder
     Dosage: DOSAGE: 2X1 , UNIT DOSE :25 MG , DURATION : 16 DAYS
     Route: 048
     Dates: start: 20210927, end: 20211013
  2. AGOMELATINE [Suspect]
     Active Substance: AGOMELATINE
     Indication: Mental disorder
     Dosage: DOSAGE: 1X1 , UNIT DOSE : 25 MG , DURATION : 18 DAYS
     Route: 048
     Dates: start: 20210927, end: 20211015

REACTIONS (1)
  - Erythema [Recovered/Resolved]

NARRATIVE: CASE EVENT DATE: 20211010
